FAERS Safety Report 19833550 (Version 1)
Quarter: 2021Q3

REPORT INFORMATION
  Report Type: Spontaneous
  Country: US (occurrence: US)
  Receive Date: 20210915
  Receipt Date: 20210915
  Transmission Date: 20211014
  Serious: Yes (Hospitalization)
  Sender: FDA-Public Use
  Company Number: US-STRIDES ARCOLAB LIMITED-2021SP003832

PATIENT
  Age: 1 Decade
  Sex: Female

DRUGS (5)
  1. TACROLIMUS. [Interacting]
     Active Substance: TACROLIMUS
     Dosage: 2 MILLIGRAM, BID
     Route: 065
     Dates: start: 2020
  2. TACROLIMUS. [Interacting]
     Active Substance: TACROLIMUS
     Indication: BONE MARROW TRANSPLANT
     Dosage: 1.4 MILLIGRAM, BID
     Route: 065
     Dates: start: 2020
  3. VORICONAZOLE. [Interacting]
     Active Substance: VORICONAZOLE
     Indication: PULMONARY MASS
     Dosage: UNK
     Route: 065
     Dates: start: 2020
  4. TACROLIMUS. [Suspect]
     Active Substance: TACROLIMUS
     Indication: PROPHYLAXIS AGAINST GRAFT VERSUS HOST DISEASE
     Dosage: 1.2 MILLIGRAM, BID
     Route: 065
     Dates: start: 2020
  5. VORICONAZOLE. [Interacting]
     Active Substance: VORICONAZOLE
     Indication: PYREXIA

REACTIONS (5)
  - Toxicity to various agents [Unknown]
  - Off label use [Unknown]
  - Drug level above therapeutic [Recovered/Resolved]
  - Drug interaction [Unknown]
  - Septic shock [Unknown]

NARRATIVE: CASE EVENT DATE: 2020
